FAERS Safety Report 8059003-0 (Version None)
Quarter: 2012Q1

REPORT INFORMATION
  Report Type: 
  Country: None (occurrence: None)
  Receive Date: 20120120
  Receipt Date: 20110207
  Transmission Date: 20120608
  Serious: No
  Sender: FDA-Public Use
  Company Number: US-BAUSCH-2011BL000779

PATIENT
  Age: 83 Year
  Sex: Male

DRUGS (3)
  1. XALATAN /SWE/ [Concomitant]
     Indication: INTRAOCULAR PRESSURE INCREASED
     Route: 047
  2. LORATADINE [Concomitant]
     Indication: HYPERSENSITIVITY
     Route: 048
  3. ALAWAY [Suspect]
     Indication: EYE PRURITUS
     Route: 047
     Dates: start: 20100101

REACTIONS (1)
  - EYE IRRITATION [None]
